FAERS Safety Report 10440869 (Version 1)
Quarter: 2014Q3

REPORT INFORMATION
  Report Type: Spontaneous
  Country: US (occurrence: None)
  Receive Date: 20140905
  Receipt Date: 20140905
  Transmission Date: 20150326
  Serious: Yes (Death)
  Sender: FDA-Public Use
  Company Number: 2014SA118672

PATIENT
  Age: 18 Year
  Sex: Female

DRUGS (3)
  1. OXYCARBAZEPINE [Suspect]
     Active Substance: OXCARBAZEPINE
     Indication: COMPLETED SUICIDE
  2. ETHANOL [Suspect]
     Active Substance: ALCOHOL
     Indication: COMPLETED SUICIDE
  3. DIPHENHYDRAMINE [Suspect]
     Active Substance: DIPHENHYDRAMINE
     Indication: COMPLETED SUICIDE

REACTIONS (3)
  - Drug interaction [None]
  - Completed suicide [None]
  - Intentional overdose [None]
